FAERS Safety Report 4312981-5 (Version None)
Quarter: 2004Q1

REPORT INFORMATION
  Report Type: 
  Country: None (occurrence: None)
  Receive Date: 20040305
  Receipt Date: 20040305
  Transmission Date: 20041129
  Serious: No
  Sender: FDA-Public Use
  Company Number: None

PATIENT
  Sex: Female
  Weight: 86.1834 kg

DRUGS (2)
  1. POLYGAM S/D [Suspect]
     Indication: MULTIPLE SCLEROSIS
     Dosage: 15 GM TAPERED INFUSION Q MO
  2. POLYGAM S/D [Suspect]
     Indication: ASTHMA

REACTIONS (4)
  - BACK PAIN [None]
  - BLOOD PRESSURE INCREASED [None]
  - CHEST PAIN [None]
  - HEADACHE [None]
